FAERS Safety Report 13046167 (Version 1)
Quarter: 2016Q4

REPORT INFORMATION
  Report Type: Spontaneous
  Country: US (occurrence: US)
  Receive Date: 20161220
  Receipt Date: 20161220
  Transmission Date: 20170207
  Serious: No
  Sender: FDA-Public Use
  Company Number: US-PFIZER INC-2016573314

PATIENT
  Sex: Female

DRUGS (1)
  1. XELJANZ [Suspect]
     Active Substance: TOFACITINIB CITRATE
     Dosage: UNK

REACTIONS (15)
  - Arthralgia [Unknown]
  - Joint swelling [Unknown]
  - Poor quality sleep [Unknown]
  - Hand deformity [Unknown]
  - Peripheral swelling [Unknown]
  - Sleep disorder [Unknown]
  - Musculoskeletal stiffness [Unknown]
  - Back pain [Unknown]
  - Rales [Unknown]
  - Dizziness postural [Unknown]
  - Cough [Unknown]
  - Crepitations [Unknown]
  - Myalgia [Unknown]
  - Joint range of motion decreased [Unknown]
  - Muscular weakness [Unknown]
